FAERS Safety Report 9286799 (Version 1)
Quarter: 2013Q2

REPORT INFORMATION
  Report Type: Spontaneous
  Country: US (occurrence: US)
  Receive Date: 20130513
  Receipt Date: 20130513
  Transmission Date: 20140414
  Serious: No
  Sender: FDA-Public Use
  Company Number: US-ASTRAZENECA-2013SE26845

PATIENT
  Age: 65 Year
  Sex: Female

DRUGS (8)
  1. NEXIUM [Suspect]
     Indication: GASTROOESOPHAGEAL REFLUX DISEASE
     Route: 048
     Dates: start: 1998, end: 201301
  2. NEXIUM [Suspect]
     Indication: GASTROOESOPHAGEAL REFLUX DISEASE
     Dosage: TWO TIMES A DAY
     Route: 048
  3. OMEPRAZOLE [Suspect]
     Indication: GASTROOESOPHAGEAL REFLUX DISEASE
     Route: 048
     Dates: start: 201301
  4. OMEPRAZOLE [Suspect]
     Indication: GASTROOESOPHAGEAL REFLUX DISEASE
     Route: 048
     Dates: start: 201301
  5. PROPANOLOL [Suspect]
     Indication: MIGRAINE
     Route: 048
     Dates: start: 201303
  6. BUTALBITAL [Concomitant]
     Indication: MIGRAINE
     Dosage: PRN
     Route: 048
     Dates: start: 201303
  7. OXYBUTYIN [Concomitant]
     Indication: BLADDER DISORDER
     Route: 048
     Dates: end: 201302
  8. PROAIR INHALER [Concomitant]
     Indication: CHRONIC OBSTRUCTIVE PULMONARY DISEASE
     Dosage: 90 MCG PRN
     Route: 048
     Dates: start: 201302

REACTIONS (11)
  - Stress [Unknown]
  - Bladder disorder [Unknown]
  - Sedation [Unknown]
  - Weight decreased [Unknown]
  - Eating disorder [Unknown]
  - Dyspepsia [Unknown]
  - Crying [Unknown]
  - Migraine [Unknown]
  - Intentional drug misuse [Unknown]
  - Off label use [Unknown]
  - Drug ineffective [Unknown]
